FAERS Safety Report 10156795 (Version 1)
Quarter: 2014Q2

REPORT INFORMATION
  Report Type: Spontaneous
  Country: US (occurrence: None)
  Receive Date: 20140506
  Receipt Date: 20140506
  Transmission Date: 20141212
  Serious: Yes (Hospitalization)
  Sender: FDA-Public Use
  Company Number: None

PATIENT
  Age: 68 Year
  Sex: Female

DRUGS (19)
  1. IMBRUVICA [Suspect]
     Indication: CHRONIC LYMPHOCYTIC LEUKAEMIA
     Route: 048
     Dates: start: 20140205
  2. ARIMIDEX [Concomitant]
  3. LASIX [Concomitant]
  4. POTASSIUM [Concomitant]
  5. SIMVASTATIN [Concomitant]
  6. BENAZEPRIL [Concomitant]
  7. DOCUSATE SODIUM [Concomitant]
  8. RESTASIS [Concomitant]
  9. VIT E [Concomitant]
  10. OMEGA (DIETARY SUPPLEMENT) [Concomitant]
  11. FLAXSEED OIL [Concomitant]
  12. GLUCOSAMINE [Concomitant]
  13. CHONDROINTIN [Concomitant]
  14. D3 [Concomitant]
  15. B12 [Concomitant]
  16. LUTEIN [Concomitant]
  17. MULTIVITAMIN NO IRON [Concomitant]
  18. GABAPENTIN [Suspect]
  19. BACTRIM [Concomitant]

REACTIONS (2)
  - Surgery [None]
  - Drug dose omission [None]
